FAERS Safety Report 10210884 (Version 1)
Quarter: 2014Q2

REPORT INFORMATION
  Report Type: Spontaneous
  Country: US (occurrence: None)
  Receive Date: 20140530
  Receipt Date: 20140530
  Transmission Date: 20141212
  Serious: Yes (Disabling)
  Sender: FDA-Public Use
  Company Number: None

PATIENT
  Age: 42 Year
  Sex: Female
  Weight: 101.15 kg

DRUGS (2)
  1. CARVEDILOL [Suspect]
     Indication: CHEST PAIN
     Dosage: ONE TABLET TWICE DAILY,TWICE DAILY, TAKEN BY MOUTH
     Route: 048
     Dates: start: 20140320, end: 20140509
  2. CARVEDILOL [Suspect]
     Indication: HEART RATE IRREGULAR
     Dosage: ONE TABLET TWICE DAILY,TWICE DAILY, TAKEN BY MOUTH
     Route: 048
     Dates: start: 20140320, end: 20140509

REACTIONS (7)
  - Swelling face [None]
  - Vision blurred [None]
  - Fluid retention [None]
  - Peripheral swelling [None]
  - Joint swelling [None]
  - Peripheral swelling [None]
  - Peripheral swelling [None]
